FAERS Safety Report 5207667-9 (Version None)
Quarter: 2007Q1

REPORT INFORMATION
  Report Type: 
  Country: None (occurrence: None)
  Receive Date: 20070112
  Receipt Date: 20061213
  Transmission Date: 20070707
  Serious: Yes (Other)
  Sender: FDA-Public Use
  Company Number: BR-PFIZER INC-2006154017

PATIENT
  Sex: Female

DRUGS (3)
  1. DOSTINEX [Suspect]
     Indication: HYPERPROLACTINAEMIA
     Route: 048
  2. DOSTINEX [Suspect]
     Indication: PITUITARY TUMOUR BENIGN
  3. PARLODEL [Concomitant]
     Route: 048
     Dates: start: 19990101, end: 20061101

REACTIONS (1)
  - PITUITARY TUMOUR BENIGN [None]
